FAERS Safety Report 24826765 (Version 1)
Quarter: 2025Q1

REPORT INFORMATION
  Report Type: Spontaneous
  Country: US (occurrence: US)
  Receive Date: 20250109
  Receipt Date: 20250109
  Transmission Date: 20250408
  Serious: No
  Sender: COOPERSURGICAL
  Company Number: US-COOPERSURGICAL, INC.-US-2024CPS000503

PATIENT
  Sex: Female
  Weight: 103.4 kg

DRUGS (5)
  1. PARAGARD T 380A [Suspect]
     Active Substance: COPPER
     Indication: Contraception
     Route: 015
     Dates: start: 20240112, end: 20240215
  2. ONDANSETRON [Concomitant]
     Active Substance: ONDANSETRON
  3. IBUPROFEN [Concomitant]
     Active Substance: IBUPROFEN
  4. ONDANSETRON [Suspect]
     Active Substance: ONDANSETRON
  5. IBUPROFEN [Suspect]
     Active Substance: IBUPROFEN

REACTIONS (5)
  - Pelvic pain [Recovering/Resolving]
  - Uterine pain [Unknown]
  - Procedural nausea [Recovered/Resolved]
  - Procedural vomiting [Recovered/Resolved]
  - Device dislocation [Recovered/Resolved]

NARRATIVE: CASE EVENT DATE: 20240101
